FAERS Safety Report 5150392-3 (Version None)
Quarter: 2006Q4

REPORT INFORMATION
  Report Type: 
  Country: None (occurrence: None)
  Receive Date: 20061110
  Receipt Date: 20061110
  Transmission Date: 20070319
  Serious: Yes (Life-Threatening, Hospitalization, Other)
  Sender: FDA-Public Use
  Company Number: None

PATIENT
  Age: 31 Year
  Sex: Female
  Weight: 83.9154 kg

DRUGS (4)
  1. PAIN RELIEVER QTY 500  500MG EACH PERRIGO [Suspect]
     Indication: HEADACHE
     Dosage: 2 PILLS EVERY 6 HOURS PO
     Route: 048
     Dates: start: 20060901, end: 20061108
  2. PAIN RELIEVER QTY 500  500MG EACH PERRIGO [Suspect]
     Indication: MYALGIA
     Dosage: 2 PILLS EVERY 6 HOURS PO
     Route: 048
     Dates: start: 20060901, end: 20061108
  3. EQUATE PAIN RELEIVER [Concomitant]
  4. ALLEGAN [Concomitant]

REACTIONS (6)
  - CROHN'S DISEASE [None]
  - DISCOMFORT [None]
  - GASTROINTESTINAL ULCER [None]
  - HEADACHE [None]
  - LARGE INTESTINAL ULCER [None]
  - THERAPY NON-RESPONDER [None]
